FAERS Safety Report 7060157-3 (Version None)
Quarter: 2010Q4

REPORT INFORMATION
  Report Type: 
  Country: None (occurrence: None)
  Receive Date: 20101025
  Receipt Date: 20101018
  Transmission Date: 20110411
  Serious: Yes (Other)
  Sender: FDA-Public Use
  Company Number: PHHY2010US56387

PATIENT
  Sex: Female

DRUGS (6)
  1. EXTAVIA [Suspect]
     Indication: MULTIPLE SCLEROSIS
     Dosage: 0.25 MG, QOD
     Route: 058
     Dates: start: 20100728
  2. EXTAVIA [Suspect]
     Dosage: 0.125 MG, QOD
     Route: 058
     Dates: start: 20100804
  3. EXTAVIA [Suspect]
     Dosage: 0.5 ML QOD
     Route: 058
  4. EXTAVIA [Suspect]
     Dosage: 0.25 MG, QOD
     Route: 058
  5. METOPROLOL [Concomitant]
     Dosage: 50 MG, QD
  6. NORVASC [Concomitant]
     Dosage: 10 MG, QD

REACTIONS (4)
  - DISTURBANCE IN ATTENTION [None]
  - FATIGUE [None]
  - LOSS OF CONSCIOUSNESS [None]
  - PANIC ATTACK [None]
